FAERS Safety Report 9117294 (Version 2)
Quarter: 2013Q3

REPORT INFORMATION
  Report Type: Report from Study
  Country: CA (occurrence: CA)
  Receive Date: 20130225
  Receipt Date: 20130904
  Transmission Date: 20140515
  Serious: Yes (Hospitalization, Other)
  Sender: FDA-Public Use
  Company Number: CA-JNJFOC-20130207904

PATIENT
  Age: 30 Year
  Sex: Male
  Weight: 99.79 kg

DRUGS (11)
  1. REMICADE [Suspect]
     Indication: CROHN^S DISEASE
     Dosage: APPROXIMATE TOTAL NUMBER OF INFUSIONS RECEIVED WERE MORE THAN 30
     Route: 042
     Dates: start: 2009, end: 20120413
  2. ALL OTHER THERAPEUTICS [Concomitant]
     Dosage: GIVEN ONCE
     Route: 065
  3. DILAUDID [Concomitant]
     Dosage: COUPLE TIMES A DAY
     Route: 065
  4. GRAVOL [Concomitant]
     Route: 065
  5. ALL OTHER THERAPEUTICS [Concomitant]
     Dosage: IV MEDICATION: CONSISTANT
     Route: 042
  6. BENADRYL [Concomitant]
     Indication: PREMEDICATION
     Route: 042
     Dates: start: 20120413
  7. ACETAMINOPHEN [Concomitant]
     Indication: PREMEDICATION
     Route: 048
     Dates: start: 20120413
  8. HYDROCORTISONE [Concomitant]
     Indication: PREMEDICATION
     Route: 042
     Dates: start: 20120413
  9. IMURAN [Concomitant]
     Indication: CROHN^S DISEASE
     Route: 065
     Dates: start: 2009
  10. HUMIRA [Concomitant]
     Indication: CROHN^S DISEASE
     Route: 065
     Dates: start: 20130321
  11. VITAMIN D [Concomitant]
     Route: 065
     Dates: start: 2006

REACTIONS (6)
  - Hypersensitivity [Recovered/Resolved]
  - Infusion related reaction [Recovered/Resolved]
  - Oxygen saturation decreased [Recovered/Resolved]
  - Therapeutic response decreased [Unknown]
  - Intestinal stenosis [Unknown]
  - Drug effect decreased [Unknown]
